FAERS Safety Report 6189167-5 (Version None)
Quarter: 2009Q2

REPORT INFORMATION
  Report Type: 
  Country: None (occurrence: None)
  Receive Date: 20090513
  Receipt Date: 20090407
  Transmission Date: 20091009
  Serious: No
  Sender: FDA-Public Use
  Company Number: A0777789A

PATIENT
  Sex: Female

DRUGS (2)
  1. TREXIMET [Suspect]
     Indication: MIGRAINE
     Dosage: 85MG SINGLE DOSE
     Route: 048
  2. MIDRIN [Concomitant]

REACTIONS (3)
  - DYSPHAGIA [None]
  - PAIN [None]
  - THROAT TIGHTNESS [None]
